FAERS Safety Report 18699631 (Version 2)
Quarter: 2021Q1

REPORT INFORMATION
  Report Type: Spontaneous
  Country: TR (occurrence: TR)
  Receive Date: 20210105
  Receipt Date: 20210111
  Transmission Date: 20210419
  Serious: Yes (Death, Life-Threatening, Other)
  Sender: FDA-Public Use
  Company Number: TR-CHEPLA-C20204029_01

PATIENT
  Age: 7 Year
  Sex: Male

DRUGS (5)
  1. FOSCARNET [Suspect]
     Active Substance: FOSCARNET
  2. CIDOFOVIR. [Concomitant]
     Active Substance: CIDOFOVIR
  3. LEFLUNOMIDE. [Concomitant]
     Active Substance: LEFLUNOMIDE
  4. GANCICLOVIR. [Suspect]
     Active Substance: GANCICLOVIR
     Indication: CYTOMEGALOVIRUS INFECTION
     Dosage: START ON DAY 22 AFTER HEMATOPOIETIC STEM CELL TRANSPLANTATION
     Route: 065
  5. GANCICLOVIR. [Suspect]
     Active Substance: GANCICLOVIR
     Indication: CYTOMEGALOVIRUS INFECTION
     Dosage: START ON DAY 110 AFTER HEMATOPOIETIC STEM CELL TRANSPLANTATION
     Route: 065

REACTIONS (10)
  - Graft versus host disease [Unknown]
  - Graft versus host disease in skin [Recovered/Resolved]
  - Retinitis [Unknown]
  - Drug resistance [Unknown]
  - Pneumonia cytomegaloviral [Unknown]
  - Cytomegalovirus enteritis [Unknown]
  - Product use issue [Unknown]
  - Respiratory failure [Fatal]
  - Graft versus host disease in gastrointestinal tract [Recovered/Resolved]
  - Cytomegalovirus infection [Unknown]
